FAERS Safety Report 5499992-1 (Version None)
Quarter: 2007Q4

REPORT INFORMATION
  Report Type: 
  Country: None (occurrence: None)
  Receive Date: 20071026
  Receipt Date: 20071016
  Transmission Date: 20080405
  Serious: Yes (Other)
  Sender: FDA-Public Use
  Company Number: JP-PFIZER INC-2007087835

PATIENT
  Age: 69 Year
  Sex: Male

DRUGS (2)
  1. CELECOX [Suspect]
     Indication: RHEUMATOID ARTHRITIS
     Dosage: DAILY DOSE:400MG
     Route: 048
  2. IRSOGLADINE MALEATE [Concomitant]
     Dosage: DAILY DOSE:4MG
     Route: 048

REACTIONS (3)
  - CHEILITIS [None]
  - STOMATITIS [None]
  - THIRST [None]
